FAERS Safety Report 19019408 (Version 1)
Quarter: 2021Q1

REPORT INFORMATION
  Report Type: Spontaneous
  Country: IN (occurrence: IN)
  Receive Date: 20210317
  Receipt Date: 20210317
  Transmission Date: 20210420
  Serious: Yes (Hospitalization, Other)
  Sender: FDA-Public Use
  Company Number: IN-CELLTRION-2021-IN-000053

PATIENT
  Age: 81 Year
  Sex: Male

DRUGS (3)
  1. LEVODOPA/CARBIDOPA [Suspect]
     Active Substance: CARBIDOPA\LEVODOPA
     Indication: PARKINSON^S DISEASE
     Dosage: 125MG? HALF TABLET FOUR TIMES A DAY
     Route: 048
  2. ROPINIROLE (NON?SPECIFIC) [Suspect]
     Active Substance: ROPINIROLE HYDROCHLORIDE
     Indication: PARKINSON^S DISEASE
     Dosage: 0.5MG?ONE TABLET TWICE A DAY
     Route: 048
  3. RASAGILINE. [Suspect]
     Active Substance: RASAGILINE
     Indication: PARKINSON^S DISEASE
     Dosage: 1MG?ONCE A DAY AT BEDTIME

REACTIONS (2)
  - Hallucination, visual [Recovered/Resolved]
  - Dystonia [Unknown]
